FAERS Safety Report 6983943-4 (Version None)
Quarter: 2010Q3

REPORT INFORMATION
  Report Type: 
  Country: None (occurrence: None)
  Receive Date: 20100914
  Receipt Date: 20090420
  Transmission Date: 20110219
  Serious: No
  Sender: FDA-Public Use
  Company Number: US-WYE-H09041009

PATIENT
  Sex: Male
  Weight: 104.42 kg

DRUGS (5)
  1. TORISEL [Suspect]
     Indication: RENAL CELL CARCINOMA
     Route: 042
     Dates: start: 20090301
  2. ALLOPURINOL [Concomitant]
  3. CAPTOPRIL [Concomitant]
  4. NORVASC [Concomitant]
  5. METFORMIN HCL [Concomitant]

REACTIONS (4)
  - HAIR COLOUR CHANGES [None]
  - NAUSEA [None]
  - VERTIGO [None]
  - WEIGHT DECREASED [None]
